FAERS Safety Report 7293848-X (Version None)
Quarter: 2011Q1

REPORT INFORMATION
  Report Type: 
  Country: None (occurrence: None)
  Receive Date: 20110203
  Receipt Date: 20110121
  Transmission Date: 20110831
  Serious: Yes (Other)
  Sender: FDA-Public Use
  Company Number: DSJ-2011-01293

PATIENT
  Age: 58 Year
  Sex: Male

DRUGS (3)
  1. DOXAZOSIN (DOXAZOSIN) (DOXAZOSIN) [Suspect]
     Indication: OLIGURIA
     Dosage: 2 MG, PER ORAL
     Route: 048
     Dates: start: 20110116, end: 20110116
  2. BENICAR [Suspect]
     Indication: HYPERTENSION
     Dosage: 20 MG (20 MG, 1 IN 1 D), PER ORAL
     Route: 048
     Dates: start: 20060101
  3. OMEPRAZOLE [Concomitant]

REACTIONS (4)
  - DYSPNOEA [None]
  - OLIGURIA [None]
  - HYPOTENSION [None]
  - DIZZINESS [None]
